FAERS Safety Report 6417110-X (Version None)
Quarter: 2009Q4

REPORT INFORMATION
  Report Type: 
  Country: None (occurrence: None)
  Receive Date: 20091028
  Receipt Date: 20091013
  Transmission Date: 20100525
  Serious: Yes (Disabling, Other)
  Sender: FDA-Public Use
  Company Number: RU-BAYER-200935369GPV

PATIENT
  Age: 31 Year
  Sex: Male

DRUGS (1)
  1. BETAFERON [Suspect]
     Indication: MULTIPLE SCLEROSIS
     Route: 058

REACTIONS (4)
  - ASTHENIA [None]
  - DEPRESSED MOOD [None]
  - MOBILITY DECREASED [None]
  - MOVEMENT DISORDER [None]
